FAERS Safety Report 18155973 (Version 2)
Quarter: 2020Q3

REPORT INFORMATION
  Report Type: Report from Study
  Country: GB (occurrence: GB)
  Receive Date: 20200817
  Receipt Date: 20200828
  Transmission Date: 20201103
  Serious: Yes (Hospitalization)
  Sender: FDA-Public Use
  Company Number: GB-ROCHE-2658590

PATIENT
  Age: 71 Year
  Sex: Female

DRUGS (12)
  1. KY1044 [Suspect]
     Active Substance: INVESTIGATIONAL PRODUCT
     Indication: BREAST CANCER
     Route: 042
     Dates: start: 20200707, end: 20200707
  2. CETRABEN [Concomitant]
     Active Substance: PARAFFIN
     Dates: start: 2019
  3. HYDROCORTISONE. [Concomitant]
     Active Substance: HYDROCORTISONE
     Dates: start: 20200707
  4. ATEZOLIZUMAB. [Suspect]
     Active Substance: ATEZOLIZUMAB
     Dosage: DURATION FOR 1 HR 5 MIN
     Route: 042
     Dates: start: 20200728, end: 20200728
  5. PARACETAMOL [Concomitant]
     Active Substance: ACETAMINOPHEN
     Dates: start: 20200715
  6. PREGABALIN. [Concomitant]
     Active Substance: PREGABALIN
     Dates: start: 2017
  7. PIRITON [Concomitant]
     Active Substance: CHLORPHENIRAMINE MALEATE
     Dates: start: 20200707
  8. ADCAL (UNITED KINGDOM) [Concomitant]
     Active Substance: CALCIUM CARBONATE
     Dates: start: 2018
  9. ATEZOLIZUMAB. [Suspect]
     Active Substance: ATEZOLIZUMAB
     Indication: BREAST CANCER
     Route: 042
     Dates: start: 20200707, end: 20200707
  10. KY1044 [Suspect]
     Active Substance: INVESTIGATIONAL PRODUCT
     Dosage: DURATION FOR 1 HOUR
     Route: 042
     Dates: start: 20200728, end: 20200728
  11. EPINEPHRINE;LIDOCAINE HYDROCHLORIDE [Concomitant]
     Active Substance: EPINEPHRINE\LIDOCAINE HYDROCHLORIDE
     Dates: start: 20200717, end: 20200717
  12. DIFFLAM [Concomitant]
     Active Substance: BENZYDAMINE HYDROCHLORIDE
     Dates: start: 2019

REACTIONS (1)
  - Swelling face [Recovered/Resolved]

NARRATIVE: CASE EVENT DATE: 20200731
